FAERS Safety Report 9209380 (Version 1)
Quarter: 2013Q2

REPORT INFORMATION
  Report Type: Spontaneous
  Country: US (occurrence: None)
  Receive Date: 20130403
  Receipt Date: 20130403
  Transmission Date: 20140414
  Serious: Yes (Other)
  Sender: FDA-Public Use
  Company Number: None

PATIENT
  Age: 71 Year
  Sex: Female
  Weight: 86.18 kg

DRUGS (1)
  1. TOVIAZ 8 MGM PFIZER [Suspect]
     Indication: URINARY INCONTINENCE
     Dosage: 8 MGM 1 TAB H.S P.O.
     Route: 048

REACTIONS (4)
  - Dysuria [None]
  - Middle insomnia [None]
  - Micturition urgency [None]
  - Urine output decreased [None]
